FAERS Safety Report 6516174-2 (Version None)
Quarter: 2009Q4

REPORT INFORMATION
  Report Type: 
  Country: None (occurrence: None)
  Receive Date: 20091223
  Receipt Date: 20091211
  Transmission Date: 20100525
  Serious: No
  Sender: FDA-Public Use
  Company Number: US-ABBOTT-09P-163-0614741-00

PATIENT
  Age: 5 Year
  Sex: Female
  Weight: 20.43 kg

DRUGS (2)
  1. BIAXIN [Suspect]
     Indication: SINUSITIS
     Dosage: 250/5ML
     Dates: start: 20091001
  2. BIAXIN [Suspect]
     Dates: start: 20091204

REACTIONS (1)
  - BLOOD GLUCOSE DECREASED [None]
